FAERS Safety Report 17430362 (Version 2)
Quarter: 2020Q1

REPORT INFORMATION
  Report Type: Spontaneous
  Country: US (occurrence: US)
  Receive Date: 20200218
  Receipt Date: 20200316
  Transmission Date: 20200409
  Serious: No
  Sender: FDA-Public Use
  Company Number: US-PFIZER INC-2020069734

PATIENT
  Age: 31 Year
  Sex: Female

DRUGS (1)
  1. ADVIL [Suspect]
     Active Substance: IBUPROFEN
     Indication: HEADACHE
     Dosage: UNK, DAILY (2-4 A DAY)
     Dates: start: 20200219

REACTIONS (2)
  - Pain [Recovered/Resolved]
  - Accidental exposure to product packaging [Recovered/Resolved]

NARRATIVE: CASE EVENT DATE: 20200219
